FAERS Safety Report 21662870 (Version 2)
Quarter: 2022Q4

REPORT INFORMATION
  Report Type: Spontaneous
  Country: JP (occurrence: JP)
  Receive Date: 20221130
  Receipt Date: 20221213
  Transmission Date: 20230113
  Serious: Yes (Other)
  Sender: FDA-Public Use
  Company Number: JP-OTSUKA-2022_052930

PATIENT
  Age: 42 Year
  Sex: Female
  Weight: 46 kg

DRUGS (2)
  1. ICLUSIG [Suspect]
     Active Substance: PONATINIB
     Indication: B precursor type acute leukaemia
     Dosage: 15 MILLIGRAM, QOD
     Route: 048
     Dates: start: 20220630, end: 20220819
  2. BLINCYTO [Suspect]
     Active Substance: BLINATUMOMAB
     Indication: B precursor type acute leukaemia
     Dosage: 9 MICROGRAM
     Route: 042
     Dates: start: 20220824, end: 20220829

REACTIONS (2)
  - Agranulocytosis [Recovered/Resolved]
  - Central nervous system leukaemia [Unknown]

NARRATIVE: CASE EVENT DATE: 20220829
